FAERS Safety Report 6305355-9 (Version None)
Quarter: 2009Q3

REPORT INFORMATION
  Report Type: 
  Country: None (occurrence: None)
  Receive Date: 20090807
  Receipt Date: 20090724
  Transmission Date: 20100115
  Serious: Yes (Other)
  Sender: FDA-Public Use
  Company Number: 220014K09BRA

PATIENT
  Age: 16 Year
  Sex: Male

DRUGS (3)
  1. SAIZEN [Suspect]
     Indication: GROWTH HORMONE DEFICIENCY
     Dosage: 4 DOSAGE FORMS, 6 IN 1 WEEKS
     Dates: start: 20060701, end: 20090624
  2. INDOLE (INDOMETACIN) [Concomitant]
  3. RESVERATROL (PLANT ALKALOIDS AND OTHER NATURAL PRODUCTS) [Concomitant]

REACTIONS (2)
  - LIGAMENT RUPTURE [None]
  - MENISCUS LESION [None]
